FAERS Safety Report 8169507-8 (Version None)
Quarter: 2012Q1

REPORT INFORMATION
  Report Type: 
  Country: None (occurrence: None)
  Receive Date: 20120228
  Receipt Date: 20120220
  Transmission Date: 20120608
  Serious: Yes (Death, Hospitalization)
  Sender: FDA-Public Use
  Company Number: AT-CELGENEUS-009-50794-12012512

PATIENT
  Age: 58 Year
  Sex: Male
  Weight: 91 kg

DRUGS (3)
  1. VIDAZA [Suspect]
     Dosage: 200 MILLIGRAM
     Route: 065
     Dates: start: 20120116, end: 20120120
  2. IDARUBICIN HCL [Suspect]
     Dosage: 24 MILLIGRAM
     Route: 065
     Dates: start: 20120113, end: 20120117
  3. ETOPOSIDE [Suspect]
     Dosage: 200 MILLIGRAM
     Route: 065
     Dates: start: 20120113, end: 20120115

REACTIONS (1)
  - SEPSIS [None]
